FAERS Safety Report 9564783 (Version 2)
Quarter: 2013Q3

REPORT INFORMATION
  Report Type: Report from Study
  Country: TW (occurrence: TW)
  Receive Date: 20130930
  Receipt Date: 20130930
  Transmission Date: 20140515
  Serious: Yes (Hospitalization, Other)
  Sender: FDA-Public Use
  Company Number: TW-CELGENEUS-153-C5013-11031780

PATIENT
  Age: 60 Year
  Sex: Female
  Weight: 56.6 kg

DRUGS (14)
  1. REVLIMID [Suspect]
     Indication: PLASMA CELL MYELOMA
     Dosage: 25 MILLIGRAM
     Route: 048
     Dates: start: 20110218, end: 20110310
  2. DEXAMETHASONE [Suspect]
     Indication: PLASMA CELL MYELOMA
     Dosage: 40 MILLIGRAM
     Route: 065
     Dates: start: 20110218, end: 20110311
  3. DUPIN [Concomitant]
     Indication: ANXIETY
     Dosage: 5 MILLIGRAM
     Route: 048
     Dates: start: 20110312
  4. MEDICON [Concomitant]
     Indication: COUGH
     Dosage: 15 MILLIGRAM
     Route: 048
     Dates: start: 20110312
  5. LACTULOSE [Concomitant]
     Indication: CONSTIPATION
     Dosage: 600MG/1ML 500ML
     Route: 048
     Dates: start: 20110312
  6. TAKEPRON [Concomitant]
     Indication: GASTRITIS
     Dosage: 30 MILLIGRAM
     Route: 048
     Dates: start: 20110313
  7. XYZAL [Concomitant]
     Indication: RHINORRHOEA
     Dosage: 5 MILLIGRAM
     Route: 048
     Dates: start: 20110313
  8. TETRACYCLINE [Concomitant]
     Indication: WOUND
     Dosage: 1% 5G
     Route: 047
     Dates: start: 20110314
  9. TETRACYCLINE [Concomitant]
     Dosage: 1% 5G
     Route: 047
     Dates: start: 20110315
  10. ULTRACET [Concomitant]
     Indication: PAIN IN EXTREMITY
     Dosage: 4 TABLET
     Route: 048
     Dates: start: 20110313
  11. DIPHENHYDRAMINE HCL [Concomitant]
     Indication: PACKED RED BLOOD CELL TRANSFUSION
     Dosage: 30MG/1ML/30MG
     Route: 041
     Dates: start: 20110315
  12. ASPIRINE [Concomitant]
     Indication: THROMBOSIS PROPHYLAXIS
     Dosage: 100 MILLIGRAM
     Route: 048
     Dates: start: 20110218, end: 20110311
  13. LANSOPRAZOLE [Concomitant]
     Indication: ULCER
     Dosage: 30 MILLIGRAM
     Route: 048
     Dates: start: 20101115, end: 20110331
  14. ZOLEDRONIC ACID [Concomitant]
     Indication: BONE PAIN
     Dosage: 4 MILLIGRAM
     Route: 041
     Dates: start: 200805, end: 20110220

REACTIONS (3)
  - Hypersensitivity vasculitis [Recovered/Resolved]
  - Fluid retention [Recovered/Resolved]
  - Hypernatraemia [Recovered/Resolved]
